FAERS Safety Report 13943579 (Version 2)
Quarter: 2017Q4

REPORT INFORMATION
  Report Type: Spontaneous
  Country: BE (occurrence: BE)
  Receive Date: 20170907
  Receipt Date: 20171121
  Transmission Date: 20180320
  Serious: Yes (Death, Other)
  Sender: FDA-Public Use
  Company Number: BE-SUN PHARMACEUTICAL INDUSTRIES LTD-2017R1-149035

PATIENT
  Sex: Female

DRUGS (6)
  1. METHYLPREDNISOLONE. [Suspect]
     Active Substance: METHYLPREDNISOLONE
     Indication: HODGKIN^S DISEASE
     Dosage: UNK
     Route: 065
  2. PROCARBAZINE [Suspect]
     Active Substance: PROCARBAZINE
     Indication: HODGKIN^S DISEASE
     Route: 065
  3. VINCRISTINE [Suspect]
     Active Substance: VINCRISTINE
     Indication: HODGKIN^S DISEASE
     Route: 065
  4. CYCLOPHOSPHAMIDE. [Suspect]
     Active Substance: CYCLOPHOSPHAMIDE
     Indication: HODGKIN^S DISEASE
     Route: 065
  5. PREDNISONE. [Suspect]
     Active Substance: PREDNISONE
     Indication: HODGKIN^S DISEASE
     Dosage: UNK
     Route: 065
  6. RITUXIMAB. [Suspect]
     Active Substance: RITUXIMAB
     Indication: PRODUCT USED FOR UNKNOWN INDICATION
     Route: 065

REACTIONS (3)
  - Chronic myelomonocytic leukaemia [Fatal]
  - Leishmaniasis [Not Recovered/Not Resolved]
  - Visceral leishmaniasis [Not Recovered/Not Resolved]
